FAERS Safety Report 14111420 (Version 3)
Quarter: 2017Q4

REPORT INFORMATION
  Report Type: Spontaneous
  Country: GB (occurrence: GB)
  Receive Date: 20171020
  Receipt Date: 20171201
  Transmission Date: 20180321
  Serious: Yes (Hospitalization)
  Sender: FDA-Public Use
  Company Number: GB-MYLANLABS-2017M1066004

PATIENT
  Age: 50 Year
  Sex: Male

DRUGS (3)
  1. PIRENZEPINE [Concomitant]
     Active Substance: PIRENZEPINE
     Indication: PRODUCT USED FOR UNKNOWN INDICATION
     Dosage: 50 MG, PM
     Route: 048
  2. CLOZARIL [Suspect]
     Active Substance: CLOZAPINE
     Dosage: 425 MG, PM
     Route: 048
     Dates: start: 20171013
  3. CLOZARIL [Suspect]
     Active Substance: CLOZAPINE
     Indication: SCHIZOPHRENIA
     Dosage: UNK
     Route: 048
     Dates: start: 20030804, end: 2017

REACTIONS (5)
  - Disorientation [Recovered/Resolved]
  - Confusional state [Recovered/Resolved]
  - Treatment noncompliance [Recovered/Resolved]
  - Fatigue [Unknown]
  - Hypotension [Unknown]

NARRATIVE: CASE EVENT DATE: 2017
